FAERS Safety Report 18959277 (Version 2)
Quarter: 2021Q1

REPORT INFORMATION
  Report Type: Report from Study
  Country: IT (occurrence: IT)
  Receive Date: 20210302
  Receipt Date: 20210329
  Transmission Date: 20210420
  Serious: Yes (Other)
  Sender: FDA-Public Use
  Company Number: IT-PFIZER INC-2021168663

PATIENT
  Age: 45 Year
  Sex: Female
  Weight: 81 kg

DRUGS (2)
  1. CARBOPLATIN. [Suspect]
     Active Substance: CARBOPLATIN
     Indication: BREAST CANCER STAGE I
     Dosage: 300 MG, WEEKLY
     Route: 042
  2. PACLITAXEL. [Suspect]
     Active Substance: PACLITAXEL
     Indication: BREAST CANCER STAGE I
     Dosage: 120 MG, WEEKLY
     Route: 042
     Dates: start: 20201230

REACTIONS (6)
  - Neutropenia [Recovering/Resolving]
  - Asthenia [Recovering/Resolving]
  - Leukopenia [Recovering/Resolving]
  - Nail discolouration [Recovering/Resolving]
  - Thrombocytopenia [Recovering/Resolving]
  - Skin discolouration [Recovering/Resolving]

NARRATIVE: CASE EVENT DATE: 20210127
